FAERS Safety Report 6126791-X (Version None)
Quarter: 2009Q1

REPORT INFORMATION
  Report Type: 
  Country: None (occurrence: None)
  Receive Date: 20090320
  Receipt Date: 20090310
  Transmission Date: 20090719
  Serious: Yes (Hospitalization, Other)
  Sender: FDA-Public Use
  Company Number: US-PFIZER INC-2009181769

PATIENT
  Sex: Female
  Weight: 60.327 kg

DRUGS (5)
  1. CELEBREX [Suspect]
     Dates: end: 20040201
  2. LIPITOR [Concomitant]
     Dosage: UNK
  3. CARDIZEM [Concomitant]
     Dosage: UNK
  4. SYNTHROID [Concomitant]
  5. ALL OTHER THERAPEUTIC PRODUCTS [Concomitant]
     Dosage: UNK

REACTIONS (4)
  - DIARRHOEA [None]
  - GASTRIC HAEMORRHAGE [None]
  - SYNCOPE [None]
  - WEIGHT DECREASED [None]
